FAERS Safety Report 18349892 (Version 2)
Quarter: 2020Q4

REPORT INFORMATION
  Report Type: Spontaneous
  Country: IT (occurrence: IT)
  Receive Date: 20201006
  Receipt Date: 20201020
  Transmission Date: 20210114
  Serious: Yes (Hospitalization)
  Sender: FDA-Public Use
  Company Number: IT-PFIZER INC-2020382403

PATIENT
  Age: 79 Year
  Sex: Female

DRUGS (2)
  1. VENLAFAXINE HCL [Suspect]
     Active Substance: VENLAFAXINE HYDROCHLORIDE
     Indication: MENTAL DISORDER
     Dosage: 75 MG, 1X/DAY
     Route: 048
     Dates: end: 20200918
  2. CEFTRIAXONE. [Interacting]
     Active Substance: CEFTRIAXONE
     Indication: LUNG DISORDER
     Dosage: 1 DF, 1X/DAY
     Route: 042

REACTIONS (5)
  - Drug level increased [Recovered/Resolved]
  - Off label use [Unknown]
  - Sopor [Recovered/Resolved]
  - Product use in unapproved indication [Unknown]
  - Potentiating drug interaction [Recovered/Resolved]

NARRATIVE: CASE EVENT DATE: 20200919
